FAERS Safety Report 24607187 (Version 4)
Quarter: 2024Q4

REPORT INFORMATION
  Report Type: Report from Study
  Country: US (occurrence: US)
  Receive Date: 20241112
  Receipt Date: 20241213
  Transmission Date: 20250115
  Serious: Yes (Hospitalization)
  Sender: ABBVIE
  Company Number: US-ABBVIE-5995435

PATIENT
  Age: 28 Year
  Sex: Male

DRUGS (7)
  1. SYNTHROID [Suspect]
     Active Substance: LEVOTHYROXINE SODIUM
     Indication: Hypothyroidism
     Dosage: 50 MICROGRAM
     Route: 048
     Dates: start: 202012
  2. SYNTHROID [Suspect]
     Active Substance: LEVOTHYROXINE SODIUM
     Indication: Hypothyroidism
     Route: 048
     Dates: start: 2018
  3. HALOPERIDOL [Suspect]
     Active Substance: HALOPERIDOL
     Indication: Product used for unknown indication
     Route: 065
     Dates: start: 202012
  4. HALOPERIDOL [Suspect]
     Active Substance: HALOPERIDOL
     Indication: Product used for unknown indication
     Route: 065
     Dates: end: 202003
  5. RISPERIDONE [Concomitant]
     Active Substance: RISPERIDONE
     Indication: Product used for unknown indication
  6. LEVOTHYROXINE [Suspect]
     Active Substance: LEVOTHYROXINE
     Indication: Hypothyroidism
     Dosage: 50 MICROGRAM
     Route: 048
     Dates: start: 2017, end: 202012
  7. INVEGA [Suspect]
     Active Substance: PALIPERIDONE
     Indication: Product used for unknown indication
     Route: 065

REACTIONS (26)
  - Psychotic disorder [Not Recovered/Not Resolved]
  - Glucose tolerance impaired [Recovering/Resolving]
  - Blood glucose increased [Unknown]
  - Hallucination, auditory [Not Recovered/Not Resolved]
  - Paranoia [Unknown]
  - Weight increased [Not Recovered/Not Resolved]
  - Restless legs syndrome [Recovered/Resolved]
  - Malaise [Unknown]
  - Blood pressure increased [Recovered/Resolved]
  - Psychotic disorder [Recovered/Resolved]
  - Feeding disorder [Unknown]
  - Blood glucose increased [Recovered/Resolved]
  - Chromaturia [Unknown]
  - Confusional state [Recovered/Resolved]
  - Hepatitis [Unknown]
  - Drug ineffective [Not Recovered/Not Resolved]
  - Swelling [Unknown]
  - Paranoia [Not Recovered/Not Resolved]
  - Blood pressure increased [Recovering/Resolving]
  - Hepatic pain [Not Recovered/Not Resolved]
  - Hepatic pain [Recovered/Resolved]
  - Cholelithiasis [Unknown]
  - Blood pressure increased [Recovered/Resolved]
  - Hepatic pain [Recovered/Resolved]
  - Thyroid function test abnormal [Not Recovered/Not Resolved]
  - Hepatic enzyme increased [Unknown]

NARRATIVE: CASE EVENT DATE: 20200201
